FAERS Safety Report 4506928-6 (Version None)
Quarter: 2004Q4

REPORT INFORMATION
  Report Type: 
  Country: None (occurrence: None)
  Receive Date: 20041117
  Receipt Date: 20041108
  Transmission Date: 20050328
  Serious: Yes (Other)
  Sender: FDA-Public Use
  Company Number: 2004090155

PATIENT

DRUGS (1)
  1. LINEZOLID SOLUTION, STERILE (LINEZOLID) [Suspect]
     Indication: ILL-DEFINED DISORDER

REACTIONS (2)
  - BONE MARROW DEPRESSION [None]
  - STAPHYLOCOCCAL SEPSIS [None]
